FAERS Safety Report 15609916 (Version 1)
Quarter: 2018Q4

REPORT INFORMATION
  Report Type: Spontaneous
  Country: IT (occurrence: IT)
  Receive Date: 20181113
  Receipt Date: 20181113
  Transmission Date: 20190205
  Serious: Yes (Hospitalization)
  Sender: FDA-Public Use
  Company Number: IT-ACCORD-091904

PATIENT
  Age: 11 Year
  Sex: Female
  Weight: 71 kg

DRUGS (20)
  1. CIPROFLOXACIN. [Concomitant]
     Active Substance: CIPROFLOXACIN
     Dosage: 1000 MG DAILY
     Route: 048
     Dates: start: 20171110, end: 20171115
  2. ACICLOVIR [Concomitant]
     Active Substance: ACYCLOVIR
     Dosage: 2400 MG DAILY
     Route: 048
     Dates: start: 20171110, end: 20171113
  3. MESNA. [Concomitant]
     Active Substance: MESNA
     Dosage: 1100 MG DAILY
     Dates: start: 20171115
  4. EMEND [Concomitant]
     Active Substance: APREPITANT
     Route: 048
     Dates: start: 20171111, end: 20171113
  5. NYSTATIN/NYSTATIN/LIPOSOME [Concomitant]
     Dosage: 15 ML DAILY
  6. ACICLOVIR [Concomitant]
     Active Substance: ACYCLOVIR
     Dosage: 1800 MG DAILY
     Route: 042
     Dates: start: 20171114, end: 20171211
  7. ANTITHYMOCYTE IMMUNOGLOBULIN [Suspect]
     Active Substance: THYMOCYTE IMMUNE GLOBULIN NOS
     Indication: BONE MARROW TRANSPLANT
     Route: 042
     Dates: start: 20171113, end: 20171115
  8. URSODEOXYCHOLATE SODIUM/URSODEOXYCHOLIC ACID [Concomitant]
  9. FLUCONAZOLE. [Concomitant]
     Active Substance: FLUCONAZOLE
     Dosage: 350 MG DAILY
  10. ALOXI [Concomitant]
     Active Substance: PALONOSETRON HYDROCHLORIDE
     Dates: start: 20171111
  11. THIOTEPA. [Suspect]
     Active Substance: THIOTEPA
     Indication: ALLOGENIC BONE MARROW TRANSPLANTATION THERAPY
     Dosage: 275 MG DAILY
     Route: 042
     Dates: start: 20171111, end: 20171112
  12. RANITIDINE. [Concomitant]
     Active Substance: RANITIDINE
     Dosage: 150 MG DAILY
     Route: 042
  13. FUROSEMIDE. [Concomitant]
     Active Substance: FUROSEMIDE
     Dosage: 108 MG DAILY
     Route: 042
     Dates: start: 20171110
  14. CICLOSPORIN [Concomitant]
     Active Substance: CYCLOSPORINE
     Dosage: 180 MG DAILY
     Dates: start: 20171113
  15. METHOTREXATE. [Suspect]
     Active Substance: METHOTREXATE
     Indication: ALLOGENIC BONE MARROW TRANSPLANTATION THERAPY
     Route: 042
     Dates: start: 20171119, end: 20171124
  16. CYCLOPHOSPHAMIDE. [Suspect]
     Active Substance: CYCLOPHOSPHAMIDE
     Indication: ALLOGENIC BONE MARROW TRANSPLANTATION THERAPY
     Dosage: 3300 MG EVERY HOUR(S)
     Route: 042
     Dates: start: 20171113, end: 20171114
  17. TACHIPIRINA [Concomitant]
     Active Substance: ACETAMINOPHEN
     Dosage: 1 G DAILY
     Route: 048
  18. CHLORPHENAMINE [Concomitant]
     Active Substance: CHLORPHENIRAMINE MALEATE
     Dosage: 2 DF DAILY
  19. METHYLPREDNISOLONE. [Concomitant]
     Active Substance: METHYLPREDNISOLONE
     Dosage: 40 MG DAILY
     Route: 042
     Dates: start: 20171114
  20. ANTRA [Concomitant]
     Active Substance: OMEPRAZOLE
     Route: 042

REACTIONS (3)
  - Erythema [Recovering/Resolving]
  - Pyrexia [Recovering/Resolving]
  - Off label use [Unknown]

NARRATIVE: CASE EVENT DATE: 20171128
